FAERS Safety Report 15147377 (Version 1)
Quarter: 2018Q3

REPORT INFORMATION
  Report Type: Report from Study
  Country: CL (occurrence: CL)
  Receive Date: 20180716
  Receipt Date: 20180716
  Transmission Date: 20181010
  Serious: Yes (Other)
  Sender: FDA-Public Use
  Company Number: CL-ROCHE-2153720

PATIENT
  Age: 30 Year
  Sex: Female
  Weight: 60.5 kg

DRUGS (4)
  1. OCREVUS [Suspect]
     Active Substance: OCRELIZUMAB
     Indication: RELAPSING-REMITTING MULTIPLE SCLEROSIS
     Dosage: 300 MG 15 DAYS THEN 6 MONTH
     Route: 042
     Dates: start: 20180707
  2. KETOROLAC [Concomitant]
     Active Substance: KETOROLAC\KETOROLAC TROMETHAMINE
     Dosage: 10 MG SOS
     Route: 065
  3. ZOPICLONE [Concomitant]
     Active Substance: ZOPICLONE
     Dosage: 7.5 MG AT NIGHT
     Route: 065
  4. VENLAFAXINE [Concomitant]
     Active Substance: VENLAFAXINE HYDROCHLORIDE
     Dosage: 75 MG IN THE MORNING
     Route: 065

REACTIONS (4)
  - Burning sensation [Unknown]
  - Sensory disturbance [Unknown]
  - Monoparesis [Recovering/Resolving]
  - Muscular weakness [Unknown]
